FAERS Safety Report 4877946-3 (Version None)
Quarter: 2006Q1

REPORT INFORMATION
  Report Type: 
  Country: None (occurrence: None)
  Receive Date: 20060110
  Receipt Date: 20051227
  Transmission Date: 20060701
  Serious: Yes (Hospitalization, Disabling)
  Sender: FDA-Public Use
  Company Number: PHHO2004JP13807

PATIENT
  Age: 76 Year
  Sex: Male
  Weight: 74.027 kg

DRUGS (5)
  1. VISUDYNE [Suspect]
     Indication: MACULAR DEGENERATION
     Dosage: 6 MG/M^2 ONCE IV
     Route: 042
     Dates: start: 20040903, end: 20040903
  2. MUCOSTA [Concomitant]
  3. TOWAMIN [Concomitant]
  4. GLIMICRON [Concomitant]
  5. ZADITEN [Concomitant]

REACTIONS (5)
  - CHOROIDAL DYSTROPHY [None]
  - POLYPOIDAL CHOROIDAL VASCULOPATHY [None]
  - RETINAL HAEMORRHAGE [None]
  - VISUAL ACUITY REDUCED [None]
  - VITREOUS HAEMORRHAGE [None]
